FAERS Safety Report 7525612-8 (Version None)
Quarter: 2011Q2

REPORT INFORMATION
  Report Type: 
  Country: None (occurrence: None)
  Receive Date: 20110606
  Receipt Date: 20110523
  Transmission Date: 20111010
  Serious: Yes (Other)
  Sender: FDA-Public Use
  Company Number: PHHY2011JP46128

PATIENT
  Age: 68 Year
  Sex: Male

DRUGS (1)
  1. LAMISIL [Suspect]
     Dosage: 125 MG DAILY
     Route: 048

REACTIONS (3)
  - EYE PAIN [None]
  - BLEPHARITIS [None]
  - OCULAR HYPERAEMIA [None]
